FAERS Safety Report 4887676-X (Version None)
Quarter: 2006Q1

REPORT INFORMATION
  Report Type: 
  Country: None (occurrence: None)
  Receive Date: 20060117
  Receipt Date: 20051226
  Transmission Date: 20060701
  Serious: Yes (Life-Threatening, Other)
  Sender: FDA-Public Use
  Company Number: 200512038BBE

PATIENT
  Age: 48 Year
  Sex: Female

DRUGS (3)
  1. PLASBUMIN-5 [Suspect]
     Dates: start: 20040715
  2. ANTIHISTAMINE [Concomitant]
  3. CORTICOIDE [Concomitant]

REACTIONS (1)
  - ANAPHYLACTIC SHOCK [None]
